FAERS Safety Report 8577691-7 (Version None)
Quarter: 2012Q3

REPORT INFORMATION
  Report Type: 
  Country: None (occurrence: None)
  Receive Date: 20120808
  Receipt Date: 20120726
  Transmission Date: 20120928
  Serious: Yes (Other)
  Sender: FDA-Public Use
  Company Number: CO-AMGEN-COLSP2012048724

PATIENT
  Age: 23 Year
  Sex: Female

DRUGS (3)
  1. TETANUS VACCINE [Concomitant]
     Dosage: UNK
     Dates: start: 20120401
  2. ENBREL [Suspect]
     Indication: ANKYLOSING SPONDYLITIS
     Dosage: 50 MG, MONTHLY
     Route: 058
     Dates: start: 20110601, end: 20110729
  3. MAGNESIUM [Concomitant]
     Indication: HOMEOPATHY
     Dosage: UNK

REACTIONS (2)
  - STILLBIRTH [None]
  - CHORIOAMNIONITIS [None]
